FAERS Safety Report 14081785 (Version 1)
Quarter: 2017Q4

REPORT INFORMATION
  Report Type: Spontaneous
  Country: US (occurrence: US)
  Receive Date: 20171012
  Receipt Date: 20171012
  Transmission Date: 20180321
  Serious: No
  Sender: FDA-Public Use
  Company Number: US-MYLANLABS-2017M1044455

PATIENT
  Age: 69 Year
  Sex: Male
  Weight: 108.84 kg

DRUGS (1)
  1. TEMAZEPAM CAPSULES USP [Suspect]
     Active Substance: TEMAZEPAM
     Indication: SLEEP DISORDER
     Dosage: UNK

REACTIONS (2)
  - Flashback [Not Recovered/Not Resolved]
  - Drug effect decreased [Not Recovered/Not Resolved]
